FAERS Safety Report 13313499 (Version 1)
Quarter: 2017Q1

REPORT INFORMATION
  Report Type: Spontaneous
  Country: MX (occurrence: MX)
  Receive Date: 20170309
  Receipt Date: 20170309
  Transmission Date: 20170428
  Serious: Yes (Other)
  Sender: FDA-Public Use
  Company Number: MX-SA-2017SA036259

PATIENT
  Age: 63 Year
  Sex: Male
  Weight: 90 kg

DRUGS (5)
  1. NORVASC [Concomitant]
     Active Substance: AMLODIPINE BESYLATE
     Indication: HYPERTENSION
     Dosage: ONGOING/14 YEARS APPROXIMATELY?1 ORAL TABLET OF 5MG
     Route: 048
     Dates: start: 2003
  2. CLEXANE [Suspect]
     Active Substance: ENOXAPARIN SODIUM
     Indication: THROMBOSIS PROPHYLAXIS
     Dosage: ONGOING/4 YEARS APPROXIMATELY
     Route: 058
     Dates: start: 2013
  3. ASPIRINA [Concomitant]
     Active Substance: ASPIRIN
     Indication: THROMBOSIS PROPHYLAXIS
     Dosage: ONGOING/4 YEARS APPROXIMATELY?1 ORAL TABLET OF 100 MG
     Route: 048
     Dates: start: 2013
  4. METFORMIN [Concomitant]
     Active Substance: METFORMIN HYDROCHLORIDE
     Indication: DIABETES MELLITUS
     Dosage: ONGOING/14 YEARS APPROXIMATELY?1 ORAL TABLET OF 850 MG
     Route: 048
     Dates: start: 2003
  5. CLOPIDOGREL [Concomitant]
     Active Substance: CLOPIDOGREL BISULFATE
     Indication: THROMBOSIS PROPHYLAXIS
     Dosage: ONGOING/4 YEARS APPROXIMATELY
     Route: 048
     Dates: start: 2013

REACTIONS (1)
  - Cataract [Not Recovered/Not Resolved]

NARRATIVE: CASE EVENT DATE: 2016
